FAERS Safety Report 21815226 (Version 2)
Quarter: 2023Q1

REPORT INFORMATION
  Report Type: Spontaneous
  Country: RU (occurrence: RU)
  Receive Date: 20230104
  Receipt Date: 20230125
  Transmission Date: 20230418
  Serious: Yes (Hospitalization, Other)
  Sender: FDA-Public Use
  Company Number: RU-SA-2022SA524705

PATIENT
  Age: 57 Year
  Sex: Male

DRUGS (14)
  1. DEXAMETHASONE [Suspect]
     Active Substance: DEXAMETHASONE
     Dosage: 4 MG, TID
     Route: 042
     Dates: start: 20200521
  2. HYDROXYCHLOROQUINE [Suspect]
     Active Substance: HYDROXYCHLOROQUINE
     Indication: Product use in unapproved indication
     Dosage: 400 MG, BID
     Dates: start: 20200526, end: 20200526
  3. HYDROXYCHLOROQUINE [Suspect]
     Active Substance: HYDROXYCHLOROQUINE
     Indication: COVID-19
     Dosage: 200 MG, BID
     Dates: start: 20200527, end: 20200603
  4. AZITHROMYCIN [Suspect]
     Active Substance: AZITHROMYCIN
     Indication: COVID-19
     Dosage: 250 MG, QD
     Route: 041
     Dates: start: 20200526, end: 20200601
  5. ENOXAPARIN SODIUM [Concomitant]
     Active Substance: ENOXAPARIN SODIUM
     Dosage: 40 MG, BID
     Route: 058
     Dates: start: 20200520
  6. ENOXAPARIN SODIUM [Concomitant]
     Active Substance: ENOXAPARIN SODIUM
     Dosage: 80 MG, BID
     Route: 058
     Dates: start: 20200607
  7. KETOPROFEN [Concomitant]
     Active Substance: KETOPROFEN
     Indication: Product used for unknown indication
     Dosage: UNK
     Dates: start: 20200613
  8. CEFTAROLINE FOSAMIL [Concomitant]
     Active Substance: CEFTAROLINE FOSAMIL
     Dosage: 600 MG, BID
     Route: 041
     Dates: start: 20200607
  9. ACETAMINOPHEN [Concomitant]
     Active Substance: ACETAMINOPHEN
     Indication: Pyrexia
     Dosage: UNK
     Dates: start: 20200514
  10. UMIFENOVIR [Concomitant]
     Active Substance: UMIFENOVIR
     Indication: Pyrexia
     Dosage: UNK
     Dates: start: 20200514
  11. CEFTRIAXONE [Concomitant]
     Active Substance: CEFTRIAXONE
     Dosage: 2 G, QD
     Route: 042
     Dates: start: 202005
  12. LEVOFLOXACIN [Concomitant]
     Active Substance: LEVOFLOXACIN
     Dosage: 500 MG, BID
     Route: 041
     Dates: start: 20200520, end: 20200526
  13. ACTEMRA [Concomitant]
     Active Substance: TOCILIZUMAB
     Dosage: 400 MG, NO. 2 IN 12 H
     Route: 041
     Dates: start: 20200526, end: 20200527
  14. OXYGEN [Concomitant]
     Active Substance: OXYGEN
     Dosage: 10 L, QMN
     Dates: start: 20200521

REACTIONS (4)
  - Altered state of consciousness [Unknown]
  - Agitation [Unknown]
  - Seizure [Unknown]
  - Off label use [Unknown]

NARRATIVE: CASE EVENT DATE: 20200526
